FAERS Safety Report 23798606 (Version 1)
Quarter: 2024Q2

REPORT INFORMATION
  Report Type: Spontaneous
  Country: GB (occurrence: GB)
  Receive Date: 20240430
  Receipt Date: 20240430
  Transmission Date: 20240716
  Serious: Yes (Other)
  Sender: FDA-Public Use
  Company Number: None

PATIENT
  Age: 67 Year
  Sex: Male
  Weight: 86 kg

DRUGS (28)
  1. VENLAFAXINE [Suspect]
     Active Substance: VENLAFAXINE HYDROCHLORIDE
     Indication: Product used for unknown indication
     Dosage: UNK
     Route: 065
     Dates: start: 20240423
  2. AMITRIPTYLINE HYDROCHLORIDE [Concomitant]
     Active Substance: AMITRIPTYLINE HYDROCHLORIDE
     Dosage: 1 DOSAGE FORM, QD (ONE AT NIGHT)
     Route: 065
     Dates: start: 20240115
  3. AMLODIPINE [Concomitant]
     Active Substance: AMLODIPINE BESYLATE
     Dosage: 1 DOSAGE FORM, QD (TAKE ONE TABLET ONCE A DAY)
     Route: 065
     Dates: start: 20231123
  4. APIXABAN [Concomitant]
     Active Substance: APIXABAN
     Dosage: 1 DOSAGE FORM, BID (TAKE ONE TABLET TWICE A DAY TO HELP PREVENT BLO)
     Route: 065
     Dates: start: 20231018
  5. ATORVASTATIN [Concomitant]
     Active Substance: ATORVASTATIN
     Dosage: 1 DOSAGE FORM, QD (ONE TO BE TAKEN EACH DAY)
     Route: 065
     Dates: start: 20231018
  6. BISOPROLOL [Concomitant]
     Active Substance: BISOPROLOL\BISOPROLOL FUMARATE
     Dosage: 1 DOSAGE FORM, QD (TAKE ONE DAILY IN MORNING)
     Route: 065
     Dates: start: 20231018
  7. CANDESARTAN [Concomitant]
     Active Substance: CANDESARTAN
     Dosage: 1 DOSAGE FORM, QD (TAKE ONE ONCE DAILY)
     Route: 065
     Dates: start: 20231018
  8. ISOSORBIDE MONONITRATE [Concomitant]
     Active Substance: ISOSORBIDE MONONITRATE
     Dosage: 0.5 DOSAGE FORM, QD (TAKE HALF A TABLET EACH MORNING AS PER CARDIOLO)
     Route: 065
     Dates: start: 20240209
  9. DIAZEPAM [Concomitant]
     Active Substance: DIAZEPAM
     Dosage: 1 DOSAGE FORM, BID (ONE TWICE DAILY WHEN REQUIRED)
     Route: 065
     Dates: start: 20231018
  10. EMPAGLIFLOZIN [Concomitant]
     Active Substance: EMPAGLIFLOZIN
     Indication: Diabetes mellitus
     Dosage: 1 DOSAGE FORM, QD (TAKE ONE TABLET ONCE A DAY TO HELP CONTROL DIAB)
     Route: 065
     Dates: start: 20231122
  11. FERROUS FUMARATE [Concomitant]
     Active Substance: FERROUS FUMARATE
     Dosage: 1 DOSAGE FORM, QD (TAKE ONE TABLET ONCE A DAY ON AN EMPTY STOMACH)
     Route: 065
     Dates: start: 20231018
  12. FUROSEMIDE [Concomitant]
     Active Substance: FUROSEMIDE
     Dosage: 1 DOSAGE FORM, QD (TAKE ONE TABLET EACH MORNING)
     Route: 065
     Dates: start: 20240109
  13. LATANOPROST [Concomitant]
     Active Substance: LATANOPROST
     Dosage: 2 GRAM, QD (ONE DROP INTO BOTH EYES ONCE DAILY AT NIGHT)
     Route: 047
     Dates: start: 20231018
  14. Luforbec [Concomitant]
     Indication: Dyspnoea
     Dosage: 2 DOSAGE FORM, BID (INHALE TWO PUFFS TWICE A DAY TO PREVENT BREATHL)
     Route: 055
     Dates: start: 20231018
  15. METFORMIN [Concomitant]
     Active Substance: METFORMIN HYDROCHLORIDE
     Dosage: 1 DOSAGE FORM, BID (TAKE ONE TABLET TWICE DAILY)
     Route: 065
     Dates: start: 20231018
  16. MIRTAZAPINE [Concomitant]
     Active Substance: MIRTAZAPINE
     Indication: Depressed mood
     Dosage: 1 DOSAGE FORM, QD (TAKE ONE TABLET AT NIGHT TO HELP PREVENT LOW MOOD)
     Route: 065
     Dates: start: 20231018
  17. NITROLINGUAL [Concomitant]
     Active Substance: NITROGLYCERIN
     Dosage: 1 DOSAGE FORM (ONE PUFF AS NEEDED, AS NECESSARY)
     Route: 065
     Dates: start: 20231018
  18. OMEPRAZOLE [Concomitant]
     Active Substance: OMEPRAZOLE
     Dosage: 140 DOSAGE FORM, BID (ONE TO BE TAKEN TWICE A DAY)
     Route: 065
     Dates: start: 20231018
  19. ACETAMINOPHEN [Concomitant]
     Active Substance: ACETAMINOPHEN
     Dosage: UNK, QID (TAKE ONE OR TWO FOUR TIMES DAILY AS REQUIRED)
     Route: 065
     Dates: start: 20231018
  20. CALCIUM CARBONATE\SODIUM ALGINATE\SODIUM BICARBONATE [Concomitant]
     Active Substance: CALCIUM CARBONATE\SODIUM ALGINATE\SODIUM BICARBONATE
     Dosage: UNK (TAKE 10-20MLS AFTER MEALS AND AT BEDTIME IF REQ)
     Route: 065
     Dates: start: 20231018
  21. QUETIAPINE [Concomitant]
     Active Substance: QUETIAPINE
     Dosage: 1 DOSAGE FORM, QD (TAKE ONE AT NIGHT)
     Route: 065
     Dates: start: 20231018
  22. ALBUTEROL [Concomitant]
     Active Substance: ALBUTEROL
     Dosage: 2 DOSAGE FORM (TWO PUFFS WHEN REQUIRED. (THIS INHALER CONTAINS)
     Route: 065
     Dates: start: 20231018
  23. SENNA [Concomitant]
     Active Substance: SENNA LEAF\SENNOSIDES\SENNOSIDES A AND B
     Indication: Constipation
     Dosage: 2 DOSAGE FORM, QD (TAKE TWO TABLETS AT BEDTIME TO HELP RELIEVE CON)
     Route: 065
     Dates: start: 20231018
  24. SILDENAFIL [Concomitant]
     Active Substance: SILDENAFIL
     Dosage: 1 DOSAGE FORM (TAKE ONE AS DIRECTED)
     Route: 065
     Dates: start: 20231018, end: 20240209
  25. TICAGRELOR [Concomitant]
     Active Substance: TICAGRELOR
     Dosage: 140 DOSAGE FORM, BID (TAKE ONE TABLET TWICE A DAY TO HELP PREVENT HEA)
     Route: 065
     Dates: start: 20231018
  26. TOUJEO [Concomitant]
     Active Substance: INSULIN GLARGINE
     Dosage: 60 INTERNATIONAL UNIT (60 UNITS INITIALLY TO BE REVIEWED ONGOING)
     Route: 065
     Dates: start: 20231018
  27. INSULIN ASPART [Concomitant]
     Active Substance: INSULIN ASPART
     Dosage: UNK (ADMINISTER BY SUBCUTANEOUS INJECTION AS ADVISED)
     Route: 058
     Dates: start: 20231122
  28. ZOPICLONE [Concomitant]
     Active Substance: ZOPICLONE
     Dosage: 1 DOSAGE FORM (TAKE ONE AT NIGHT AS REQUIRED. TRY TO MISS 1 TA)
     Route: 065
     Dates: start: 20231018

REACTIONS (6)
  - Abdominal discomfort [Recovered/Resolved]
  - Disorientation [Recovered/Resolved]
  - Illness [Recovered/Resolved]
  - Dissociation [Unknown]
  - Headache [Unknown]
  - Dizziness [Recovered/Resolved]

NARRATIVE: CASE EVENT DATE: 20240423
